FAERS Safety Report 7801433-3 (Version None)
Quarter: 2011Q4

REPORT INFORMATION
  Report Type: 
  Country: None (occurrence: None)
  Receive Date: 20111006
  Receipt Date: 20111006
  Transmission Date: 20120403
  Serious: Yes (Hospitalization)
  Sender: FDA-Public Use
  Company Number: None

PATIENT
  Age: 72 Year
  Sex: Male
  Weight: 202.6 kg

DRUGS (10)
  1. VERAPAMIL [Concomitant]
  2. ASPIRIN [Suspect]
     Indication: CORONARY ARTERY DISEASE
     Dosage: 81 MG DAILY PO CHRONIC
  3. ASPIRIN [Suspect]
     Indication: CORONARY ARTERY BYPASS
     Dosage: 81 MG DAILY PO CHRONIC
  4. M.V.I. [Concomitant]
  5. COUMADIN [Suspect]
     Indication: CORONARY ARTERY DISEASE
     Dosage: 7.5MG / 5 MG TTHSS / MWF PO CHRONIC
  6. COUMADIN [Suspect]
     Indication: ATRIAL FIBRILLATION
     Dosage: 7.5MG / 5 MG TTHSS / MWF PO CHRONIC
  7. VALTREX [Concomitant]
  8. ENALAPRIL HCT [Concomitant]
  9. LIPITOR [Concomitant]
  10. PERCOCET [Concomitant]

REACTIONS (1)
  - COLITIS [None]
